FAERS Safety Report 7419114-7 (Version None)
Quarter: 2011Q2

REPORT INFORMATION
  Report Type: 
  Country: None (occurrence: None)
  Receive Date: 20110415
  Receipt Date: 20110406
  Transmission Date: 20111010
  Serious: Yes (Death, Life-Threatening, Other)
  Sender: FDA-Public Use
  Company Number: US-BAXTER-2010BH024035

PATIENT
  Age: 69 Year
  Sex: Male

DRUGS (36)
  1. HEPARIN SODIUM INJECTION [Suspect]
     Indication: CATHETERISATION CARDIAC
     Route: 041
     Dates: start: 20070617, end: 20070617
  2. HEPARIN SODIUM INJECTION [Suspect]
     Indication: CHEST PAIN
     Route: 041
     Dates: start: 20070617, end: 20070617
  3. HEPARIN SODIUM INJECTION [Suspect]
     Route: 040
     Dates: start: 20070617, end: 20070617
  4. HEPARIN SODIUM INJECTION [Suspect]
     Route: 040
     Dates: start: 20070617, end: 20070617
  5. AMOXICILLIN [Concomitant]
     Indication: PRODUCT USED FOR UNKNOWN INDICATION
     Route: 065
  6. FLEXERIL [Concomitant]
     Indication: PRODUCT USED FOR UNKNOWN INDICATION
     Route: 065
  7. RELAFEN [Concomitant]
     Indication: PRODUCT USED FOR UNKNOWN INDICATION
     Route: 065
  8. LASIX [Concomitant]
     Indication: PRODUCT USED FOR UNKNOWN INDICATION
     Route: 065
  9. METOPROLOL TARTRATE [Concomitant]
     Indication: PRODUCT USED FOR UNKNOWN INDICATION
     Route: 065
  10. COUMADIN [Concomitant]
     Indication: THROMBOSIS
     Route: 048
     Dates: start: 20070601
  11. POTASSIUM CHLORIDE [Concomitant]
     Indication: PRODUCT USED FOR UNKNOWN INDICATION
     Route: 065
  12. ACETAMINOPHEN [Concomitant]
     Indication: PRODUCT USED FOR UNKNOWN INDICATION
     Route: 065
  13. ASPIRIN [Concomitant]
     Indication: PRODUCT USED FOR UNKNOWN INDICATION
     Route: 065
  14. HEPARIN SODIUM INJECTION [Suspect]
     Route: 040
     Dates: start: 20070617, end: 20070617
  15. HEPARIN SODIUM INJECTION [Suspect]
     Route: 042
     Dates: start: 20070625
  16. NAPROSYN [Suspect]
     Indication: PRODUCT USED FOR UNKNOWN INDICATION
     Route: 065
  17. NAPROXEN [Concomitant]
     Indication: ARTHRITIS
     Route: 065
     Dates: end: 20070625
  18. TETRACYCLINE [Concomitant]
     Indication: PRODUCT USED FOR UNKNOWN INDICATION
     Route: 065
  19. LORAZEPAM [Concomitant]
     Indication: PRODUCT USED FOR UNKNOWN INDICATION
     Route: 065
  20. MORPHINE [Concomitant]
     Indication: PRODUCT USED FOR UNKNOWN INDICATION
     Route: 065
  21. ZOFRAN [Concomitant]
     Indication: PRODUCT USED FOR UNKNOWN INDICATION
     Route: 042
  22. AMIDATE [Concomitant]
     Indication: PRODUCT USED FOR UNKNOWN INDICATION
     Route: 042
  23. DOPAMINE HCL [Concomitant]
     Indication: PRODUCT USED FOR UNKNOWN INDICATION
     Route: 065
  24. PLAVIX [Concomitant]
     Indication: PRODUCT USED FOR UNKNOWN INDICATION
     Route: 065
  25. HEPARIN SODIUM INJECTION [Suspect]
     Route: 040
     Dates: start: 20070617, end: 20070617
  26. HEPARIN SODIUM INJECTION [Suspect]
     Route: 040
     Dates: start: 20070617, end: 20070617
  27. TYLENOL W/ CODEINE NO. 3 [Concomitant]
     Indication: PRODUCT USED FOR UNKNOWN INDICATION
     Route: 065
  28. PROTONIX [Concomitant]
     Indication: PRODUCT USED FOR UNKNOWN INDICATION
     Route: 042
  29. HEPARIN SODIUM INJECTION [Suspect]
     Route: 042
     Dates: start: 20070617, end: 20070617
  30. HEPARIN SODIUM INJECTION [Suspect]
     Route: 040
     Dates: start: 20070617, end: 20070617
  31. HEPARIN SODIUM INJECTION [Suspect]
     Route: 042
     Dates: start: 20070625
  32. HEPARIN SODIUM 1,000 UNITS AND SODIUM CHLORIDE 0.9% [Suspect]
     Indication: PRODUCT USED FOR UNKNOWN INDICATION
     Route: 042
     Dates: start: 20070117, end: 20070117
  33. ATROPINE [Concomitant]
     Indication: PRODUCT USED FOR UNKNOWN INDICATION
     Route: 042
  34. INTEGRILIN [Concomitant]
     Indication: PRODUCT USED FOR UNKNOWN INDICATION
     Route: 065
     Dates: end: 20070617
  35. HEPARIN SODIUM INJECTION [Suspect]
     Route: 042
     Dates: start: 20070617, end: 20070617
  36. LOVENOX [Concomitant]
     Indication: PRODUCT USED FOR UNKNOWN INDICATION
     Route: 058

REACTIONS (14)
  - MYOCARDIAL INFARCTION [None]
  - PNEUMONIA BACTERIAL [None]
  - CORONARY ARTERY DISEASE [None]
  - THROMBOSIS [None]
  - HEPARIN-INDUCED THROMBOCYTOPENIA [None]
  - GASTRITIS [None]
  - RHONCHI [None]
  - GASTROINTESTINAL HAEMORRHAGE [None]
  - RESPIRATORY FAILURE [None]
  - CARDIOGENIC SHOCK [None]
  - ARRHYTHMIA [None]
  - HAEMORRHAGE [None]
  - PLEURAL EFFUSION [None]
  - CREPITATIONS [None]
